FAERS Safety Report 19683855 (Version 1)
Quarter: 2021Q3

REPORT INFORMATION
  Report Type: Spontaneous
  Country: US (occurrence: US)
  Receive Date: 20210811
  Receipt Date: 20210811
  Transmission Date: 20211014
  Serious: No
  Sender: FDA-Public Use
  Company Number: US-ELI_LILLY_AND_COMPANY-US202108004606

PATIENT
  Age: 20 Year
  Sex: Female

DRUGS (4)
  1. EMGALITY [Suspect]
     Active Substance: GALCANEZUMAB-GNLM
     Indication: MIGRAINE
     Dosage: 240 MG, SINGLE
     Dates: start: 202107
  2. EMGALITY [Suspect]
     Active Substance: GALCANEZUMAB-GNLM
     Dosage: 120 MG, UNKNOWN
  3. EMGALITY [Suspect]
     Active Substance: GALCANEZUMAB-GNLM
     Indication: MIGRAINE
     Dosage: 240 MG, SINGLE
     Dates: start: 202107
  4. EMGALITY [Suspect]
     Active Substance: GALCANEZUMAB-GNLM
     Dosage: 120 MG, UNKNOWN

REACTIONS (4)
  - Injection site pain [Unknown]
  - Accidental underdose [Unknown]
  - Injection site haemorrhage [Unknown]
  - Injection site bruising [Unknown]

NARRATIVE: CASE EVENT DATE: 202107
